FAERS Safety Report 23170326 (Version 2)
Quarter: 2023Q4

REPORT INFORMATION
  Report Type: Spontaneous
  Country: IN (occurrence: IN)
  Receive Date: 20231110
  Receipt Date: 20231221
  Transmission Date: 20240110
  Serious: Yes (Other)
  Sender: FDA-Public Use
  Company Number: IN-STRIDES ARCOLAB LIMITED-2023SP016766

PATIENT
  Age: 3 Decade
  Sex: Female

DRUGS (3)
  1. ITRACONAZOLE [Interacting]
     Active Substance: ITRACONAZOLE
     Indication: Bronchopulmonary aspergillosis allergic
     Dosage: 200 MILLIGRAM, BID
     Route: 048
  2. BUDESONIDE [Interacting]
     Active Substance: BUDESONIDE
     Indication: Asthma
     Dosage: 800 MICROGRAM/DAY, DIVIDED DOSES , RESPIRATORY
  3. FORMOTEROL [Concomitant]
     Active Substance: FORMOTEROL
     Indication: Asthma
     Dosage: 24 MICROGRAM PER DAY

REACTIONS (2)
  - Cushing^s syndrome [Recovered/Resolved]
  - Drug interaction [Unknown]
